FAERS Safety Report 22028807 (Version 1)
Quarter: 2023Q1

REPORT INFORMATION
  Report Type: Spontaneous
  Country: FR (occurrence: FR)
  Receive Date: 20230223
  Receipt Date: 20230223
  Transmission Date: 20230418
  Serious: Yes (Hospitalization)
  Sender: FDA-Public Use
  Company Number: None

PATIENT
  Age: 10 Year
  Sex: Male

DRUGS (2)
  1. CONCERTA [Suspect]
     Active Substance: METHYLPHENIDATE HYDROCHLORIDE
     Indication: Attention deficit hyperactivity disorder
     Route: 048
     Dates: start: 202212
  2. MELATONIN [Suspect]
     Active Substance: MELATONIN
     Indication: Attention deficit hyperactivity disorder
     Route: 048
     Dates: start: 202202

REACTIONS (3)
  - Areflexia [Not Recovered/Not Resolved]
  - Allodynia [Not Recovered/Not Resolved]
  - Ataxia [Not Recovered/Not Resolved]
